FAERS Safety Report 24913994 (Version 1)
Quarter: 2025Q1

REPORT INFORMATION
  Report Type: Spontaneous
  Country: GB (occurrence: GB)
  Receive Date: 20250202
  Receipt Date: 20250202
  Transmission Date: 20250409
  Serious: Yes (Other)
  Sender: CIPLA
  Company Number: GB-MHRA-31193571

PATIENT

DRUGS (3)
  1. CETIRIZINE [Suspect]
     Active Substance: CETIRIZINE HYDROCHLORIDE
     Indication: Seasonal allergy
     Route: 065
  2. LIORESAL [Concomitant]
     Active Substance: BACLOFEN
     Indication: Product used for unknown indication
     Route: 065
  3. TEGRETOL [Concomitant]
     Active Substance: CARBAMAZEPINE
     Indication: Product used for unknown indication
     Route: 065

REACTIONS (10)
  - Contusion [Recovering/Resolving]
  - Swelling [Recovering/Resolving]
  - Gingival swelling [Recovering/Resolving]
  - Gingival bleeding [Recovering/Resolving]
  - Feeding disorder [Recovering/Resolving]
  - Erythema [Recovering/Resolving]
  - Discomfort [Recovering/Resolving]
  - Oedema peripheral [Recovering/Resolving]
  - Feeling hot [Recovering/Resolving]
  - Stomatitis [Recovering/Resolving]
